FAERS Safety Report 8298833-7 (Version None)
Quarter: 2012Q2

REPORT INFORMATION
  Report Type: 
  Country: None (occurrence: None)
  Receive Date: 20120419
  Receipt Date: 20120416
  Transmission Date: 20120825
  Serious: Yes (Life-Threatening, Hospitalization)
  Sender: FDA-Public Use
  Company Number: HU-JNJFOC-20120407011

PATIENT
  Age: 68 Year
  Sex: Male

DRUGS (2)
  1. STELARA [Suspect]
     Indication: PSORIASIS
     Route: 058
     Dates: start: 20110519
  2. STELARA [Suspect]
     Route: 058
     Dates: end: 20120306

REACTIONS (1)
  - SEPSIS [None]
